FAERS Safety Report 11062133 (Version 1)
Quarter: 2015Q2

REPORT INFORMATION
  Report Type: Report from Study
  Country: NL (occurrence: NL)
  Receive Date: 20150424
  Receipt Date: 20150424
  Transmission Date: 20150821
  Serious: Yes (Other)
  Sender: FDA-Public Use
  Company Number: NL-BAYER-2015-117671

PATIENT
  Age: 53 Year
  Sex: Female

DRUGS (1)
  1. GADOVIST [Suspect]
     Active Substance: GADOBUTROL
     Indication: NUCLEAR MAGNETIC RESONANCE IMAGING
     Dosage: 5ML (1ML/SEC), ONCE
     Route: 042
     Dates: start: 20150403, end: 20150403

REACTIONS (4)
  - Nausea [Recovered/Resolved]
  - Headache [Recovered/Resolved]
  - Cough [Recovered/Resolved]
  - Erythema [Recovered/Resolved]

NARRATIVE: CASE EVENT DATE: 20150403
